FAERS Safety Report 17221779 (Version 3)
Quarter: 2020Q1

REPORT INFORMATION
  Report Type: Spontaneous
  Country: JP (occurrence: JP)
  Receive Date: 20200101
  Receipt Date: 20200130
  Transmission Date: 20200409
  Serious: Yes (Other)
  Sender: FDA-Public Use
  Company Number: JP-ACTELION-A-CH2019-192988

PATIENT
  Age: 31 Year
  Sex: Female

DRUGS (12)
  1. FERROUS CITRATE NA [Concomitant]
     Active Substance: SODIUM FERROUS CITRATE
  2. POLYCARBOPHIL CA [Concomitant]
     Active Substance: CALCIUM POLYCARBOPHIL
  3. OPSUMIT [Suspect]
     Active Substance: MACITENTAN
     Indication: PULMONARY ARTERIAL HYPERTENSION
     Dosage: 10 MG, QD
     Route: 048
     Dates: start: 20180926, end: 20190808
  4. EPOPROSTENOL ACT [Concomitant]
     Active Substance: EPOPROSTENOL
  5. ADCIRCA [Concomitant]
     Active Substance: TADALAFIL
  6. SPIRONOLACTONE. [Concomitant]
     Active Substance: SPIRONOLACTONE
  7. OXYGEN. [Concomitant]
     Active Substance: OXYGEN
  8. TRICHLORMETHIAZIDE [Concomitant]
     Active Substance: TRICHLORMETHIAZIDE
  9. TOLVAPTAN [Suspect]
     Active Substance: TOLVAPTAN
     Indication: PULMONARY ARTERIAL HYPERTENSION
     Dosage: 3.75 MG, QD
     Route: 048
     Dates: end: 20190806
  10. LOPERAMIDE [Suspect]
     Active Substance: LOPERAMIDE
     Indication: DIARRHOEA
     Dosage: 1 MG, BID
     Route: 048
     Dates: end: 20191112
  11. NEXIUM [Suspect]
     Active Substance: ESOMEPRAZOLE MAGNESIUM
     Indication: ABDOMINAL PAIN
     Dosage: 10 MG, QD
     Route: 048
     Dates: end: 20191015
  12. FUROSEMIDE. [Concomitant]
     Active Substance: FUROSEMIDE

REACTIONS (3)
  - Alanine aminotransferase increased [Recovered/Resolved]
  - Liver disorder [Recovered/Resolved]
  - Aspartate aminotransferase increased [Recovered/Resolved]

NARRATIVE: CASE EVENT DATE: 20190618
